FAERS Safety Report 6450016-9 (Version None)
Quarter: 2009Q4

REPORT INFORMATION
  Report Type: 
  Country: None (occurrence: None)
  Receive Date: 20091123
  Receipt Date: 20091113
  Transmission Date: 20100525
  Serious: Yes (Hospitalization)
  Sender: FDA-Public Use
  Company Number: DE-JNJFOC-20091105130

PATIENT
  Age: 70 Year
  Sex: Male

DRUGS (6)
  1. FENTANYL CITRATE [Suspect]
     Indication: BACK PAIN
     Route: 062
     Dates: start: 20080920
  2. PANTOZOL [Suspect]
     Indication: GASTROOESOPHAGEAL REFLUX DISEASE
     Route: 048
     Dates: start: 20080601
  3. BERLTHYROX [Concomitant]
     Indication: THYROID CANCER
     Route: 048
  4. DIPIPERON [Concomitant]
     Indication: SLEEP DISORDER
     Route: 048
  5. NOVAMINSULFON [Concomitant]
     Indication: BACK PAIN
     Route: 048
  6. RESTEX [Concomitant]
     Indication: RESTLESS LEGS SYNDROME
     Dosage: L100 MG EVODOPA + 25 MG BENSERAZIDE
     Route: 048

REACTIONS (3)
  - FAECALOMA [None]
  - FLATULENCE [None]
  - HAEMOGLOBIN DECREASED [None]
